FAERS Safety Report 25606935 (Version 1)
Quarter: 2025Q3

REPORT INFORMATION
  Report Type: Spontaneous
  Country: US (occurrence: None)
  Receive Date: 20250724
  Receipt Date: 20250724
  Transmission Date: 20251020
  Serious: Yes (Other)
  Sender: FDA-CTU
  Company Number: None

PATIENT
  Age: 20 Year
  Sex: Female
  Weight: 49.5 kg

DRUGS (1)
  1. GAMUNEX-C [Suspect]
     Active Substance: HUMAN IMMUNOGLOBULIN G
     Indication: Immunodeficiency common variable
     Route: 042
     Dates: start: 20171009

REACTIONS (4)
  - Infusion related reaction [None]
  - Urticaria [None]
  - Pruritus [None]
  - Hyperhidrosis [None]

NARRATIVE: CASE EVENT DATE: 20250724
